FAERS Safety Report 7761549-7 (Version None)
Quarter: 2011Q3

REPORT INFORMATION
  Report Type: 
  Country: None (occurrence: None)
  Receive Date: 20110920
  Receipt Date: 20110919
  Transmission Date: 20111222
  Serious: Yes (Hospitalization, Other)
  Sender: FDA-Public Use
  Company Number: FR-RB-023693-11

PATIENT
  Sex: Female

DRUGS (1)
  1. SUBUTEX [Suspect]
     Indication: PAIN
     Route: 064

REACTIONS (6)
  - MATERNAL EXPOSURE DURING PREGNANCY [None]
  - DRUG WITHDRAWAL SYNDROME NEONATAL [None]
  - SMALL FOR DATES BABY [None]
  - NEONATAL DISORDER [None]
  - CONVULSION NEONATAL [None]
  - HYPOGLYCAEMIA [None]
